FAERS Safety Report 23409268 (Version 1)
Quarter: 2024Q1

REPORT INFORMATION
  Report Type: Report from Study
  Country: US (occurrence: US)
  Receive Date: 20240117
  Receipt Date: 20240117
  Transmission Date: 20240410
  Serious: Yes (Death)
  Sender: FDA-Public Use
  Company Number: US-MIRATI-MT2024PM05720

PATIENT
  Sex: Male
  Weight: 63.492 kg

DRUGS (9)
  1. KRAZATI [Suspect]
     Active Substance: ADAGRASIB
     Indication: Lung neoplasm malignant
     Dosage: 600 MG, BID
     Route: 048
     Dates: start: 202305, end: 20231224
  2. ELIQUIS [Concomitant]
     Active Substance: APIXABAN
  3. PANTOPRAZOLE [Concomitant]
     Active Substance: PANTOPRAZOLE
  4. PERCOCET [Concomitant]
     Active Substance: ACETAMINOPHEN\OXYCODONE HYDROCHLORIDE
  5. ONDANSETRON [Concomitant]
     Active Substance: ONDANSETRON
  6. METOPROLOL [Concomitant]
     Active Substance: METOPROLOL
  7. TRELEGY ELLIPTA [Concomitant]
     Active Substance: FLUTICASONE FUROATE\UMECLIDINIUM BROMIDE\VILANTEROL TRIFENATATE
  8. ENTRESTO [Concomitant]
     Active Substance: SACUBITRIL\VALSARTAN
  9. PEPTO-BISMOL [Concomitant]
     Active Substance: BISMUTH SUBSALICYLATE

REACTIONS (1)
  - Death [Fatal]

NARRATIVE: CASE EVENT DATE: 20231224
